FAERS Safety Report 15371642 (Version 1)
Quarter: 2018Q3

REPORT INFORMATION
  Report Type: Spontaneous
  Country: SE (occurrence: SE)
  Receive Date: 20180911
  Receipt Date: 20180911
  Transmission Date: 20181010
  Serious: Yes (Other)
  Sender: FDA-Public Use
  Company Number: SE-MYLANLABS-2018M1066075

PATIENT
  Age: 36 Year
  Sex: Female

DRUGS (2)
  1. OXASCAND [Concomitant]
     Active Substance: OXAZEPAM
     Indication: ANXIETY
     Dosage: UNK
     Route: 048
  2. FLUOXETINE [Suspect]
     Active Substance: FLUOXETINE HYDROCHLORIDE
     Indication: ANXIETY
     Dosage: STRENGTH: 20 MG
     Route: 048
     Dates: start: 20180404, end: 20180410

REACTIONS (6)
  - Dyspnoea [Recovered/Resolved]
  - Dysphagia [Unknown]
  - Dyspepsia [Unknown]
  - Obstructive airways disorder [Unknown]
  - Off label use [Unknown]
  - Bronchial obstruction [Recovered/Resolved]

NARRATIVE: CASE EVENT DATE: 20180404
